FAERS Safety Report 9224542 (Version 1)
Quarter: 2013Q2

REPORT INFORMATION
  Report Type: Spontaneous
  Country: US (occurrence: US)
  Receive Date: 20130411
  Receipt Date: 20130411
  Transmission Date: 20140414
  Serious: No
  Sender: FDA-Public Use
  Company Number: US-TEVA-390381USA

PATIENT
  Sex: Male

DRUGS (1)
  1. TRIAMCINOLONE [Suspect]

REACTIONS (5)
  - Nasal discomfort [Unknown]
  - Nasal congestion [Unknown]
  - Cough [Unknown]
  - Drug ineffective [Unknown]
  - General physical health deterioration [Unknown]
